FAERS Safety Report 9980734 (Version 1)
Quarter: 2014Q1

REPORT INFORMATION
  Report Type: Spontaneous
  Country: US (occurrence: KR)
  Receive Date: 20140307
  Receipt Date: 20140307
  Transmission Date: 20141002
  Serious: Yes (Death)
  Sender: FDA-Public Use
  Company Number: 2014SP001173

PATIENT
  Age: 33 Year
  Sex: Male

DRUGS (4)
  1. METHOTREXATE [Suspect]
     Indication: PRODUCT USED FOR UNKNOWN INDICATION
     Route: 065
  2. PREDNISOLONE [Suspect]
     Indication: PRODUCT USED FOR UNKNOWN INDICATION
  3. CYCLOPHOSPHAMIDE [Suspect]
     Indication: MYELODYSPLASTIC SYNDROME
     Route: 065
  4. BUSULFAN [Suspect]
     Indication: MYELODYSPLASTIC SYNDROME

REACTIONS (1)
  - Streptococcal bacteraemia [Fatal]
